FAERS Safety Report 8800078 (Version 3)
Quarter: 2012Q4

REPORT INFORMATION
  Report Type: 
  Country: DE (occurrence: DE)
  Receive Date: 20120921
  Receipt Date: 20121224
  Transmission Date: 20130627
  Serious: Yes (Death)
  Sender: FDA-Public Use
  Company Number: PHHY2012DE081993

PATIENT
  Sex: Male

DRUGS (21)
  1. GLIVEC [Suspect]
     Indication: CHRONIC MYELOID LEUKAEMIA
     Dosage: 400 mg daily
     Route: 048
     Dates: start: 20041119, end: 20070519
  2. TASIGNA [Suspect]
     Dosage: UNK
     Dates: start: 20000430
  3. CYTARABINE [Concomitant]
     Indication: CHRONIC MYELOID LEUKAEMIA
     Dosage: 40 mg, daily
     Route: 058
     Dates: start: 20080609, end: 20080613
  4. CITALOPRAM [Concomitant]
  5. AMPHO MORONAL [Concomitant]
  6. AMARA//HERBAL EXTRACT NOS [Concomitant]
  7. TILIDIN [Concomitant]
  8. PARACETAMOL [Concomitant]
  9. NOVALGIN                                /SCH/ [Concomitant]
  10. COTRIM-CT [Concomitant]
  11. RIFUN [Concomitant]
  12. SPRYCEL [Concomitant]
     Dosage: UNK
     Dates: start: 20070806, end: 20080317
  13. MAGNESIUM [Concomitant]
  14. SANUVIS [Concomitant]
  15. TEBONIN [Concomitant]
  16. FOLSAN [Concomitant]
  17. VITAMIN B6 [Concomitant]
  18. VALORON ^GOEDECKE^ [Concomitant]
  19. BLOPRESS [Concomitant]
     Indication: HYPERTENSION
  20. APROVEL [Concomitant]
     Indication: HYPERTENSION
  21. DYTIDE H [Concomitant]

REACTIONS (1)
  - Blast crisis in myelogenous leukaemia [Fatal]
